FAERS Safety Report 5270563-5 (Version None)
Quarter: 2007Q1

REPORT INFORMATION
  Report Type: 
  Country: None (occurrence: None)
  Receive Date: 20070315
  Receipt Date: 20070310
  Transmission Date: 20070707
  Serious: Yes (Hospitalization)
  Sender: FDA-Public Use
  Company Number: 221193

PATIENT
  Age: 25 Year
  Sex: Male
  Weight: 85 kg

DRUGS (8)
  1. ERLOTINIB (ERLOTINIB) TABLET [Suspect]
     Indication: RECTAL CANCER
     Dosage: 100 MG, QD, ORAL
     Route: 048
     Dates: start: 20051221, end: 20060113
  2. FLUOROURACIL [Suspect]
     Indication: RECTAL CANCER
     Dosage: SEE IMAGE
     Route: 040
     Dates: start: 20051202, end: 20060104
  3. FLUOROURACIL [Suspect]
     Indication: RECTAL CANCER
     Dosage: SEE IMAGE
     Route: 040
     Dates: start: 20051221, end: 20060104
  4. OXALIPLATIN [Suspect]
     Indication: RECTAL CANCER
     Dosage: 65 MG/M2, Q2W, INTRAVENOUS
     Route: 042
     Dates: start: 20051202, end: 20060104
  5. AVASTIN [Suspect]
     Indication: RECTAL CANCER
     Dosage: 5 MG, Q2W, INTRAVENOUS
     Route: 042
     Dates: start: 20051221, end: 20060104
  6. LEUCOVORIN CALCIUM [Suspect]
     Indication: COLON CANCER
     Dosage: 320 MG/M2, Q2W
     Dates: start: 20051021, end: 20060104
  7. CLEOCIN T GEL (CLINDAMYCIN PHOSPHATE) [Concomitant]
  8. ELIDEL [Concomitant]

REACTIONS (3)
  - PAIN [None]
  - PURULENCE [None]
  - SUBCUTANEOUS ABSCESS [None]
